FAERS Safety Report 17641176 (Version 1)
Quarter: 2020Q2

REPORT INFORMATION
  Report Type: Spontaneous
  Country: IT (occurrence: GB)
  Receive Date: 20200408
  Receipt Date: 20200408
  Transmission Date: 20200713
  Serious: Yes (Other)
  Sender: FDA-Public Use
  Company Number: IT-SUN PHARMACEUTICAL INDUSTRIES LTD-2020RR-243189

PATIENT
  Age: 36 Year
  Sex: Female

DRUGS (5)
  1. PREGABALIN. [Suspect]
     Active Substance: PREGABALIN
     Dosage: 150 MILLIGRAM, BID
     Route: 065
  2. VENLAFAXINE [Suspect]
     Active Substance: VENLAFAXINE HYDROCHLORIDE
     Indication: GENERALISED ANXIETY DISORDER
     Dosage: 225 MG IN THE MORNING
     Route: 065
  3. LORAZEPAM. [Suspect]
     Active Substance: LORAZEPAM
     Indication: ANXIETY
     Dosage: 1-2 MILLIGRAMS (MAX 4 MG/24 H)
     Route: 065
  4. PREGABALIN. [Suspect]
     Active Substance: PREGABALIN
     Indication: ANXIETY
     Dosage: 150 MILLIGRAMS, DAILY
     Route: 065
  5. PREGABALIN. [Suspect]
     Active Substance: PREGABALIN
     Dosage: 150 MILLIGRAM, TID
     Route: 065

REACTIONS (4)
  - Drug ineffective [Unknown]
  - Hallucination, visual [Recovered/Resolved]
  - Feeling abnormal [Recovered/Resolved]
  - Agitation [Recovered/Resolved]
